FAERS Safety Report 8459016-0 (Version None)
Quarter: 2012Q2

REPORT INFORMATION
  Report Type: 
  Country: None (occurrence: None)
  Receive Date: 20120622
  Receipt Date: 20120615
  Transmission Date: 20120825
  Serious: Yes (Hospitalization, Other)
  Sender: FDA-Public Use
  Company Number: US-PFIZER INC-2012070100

PATIENT
  Sex: Female
  Weight: 78.458 kg

DRUGS (21)
  1. FLUTICASONE [Concomitant]
     Dosage: 50 UG SUSP, 1X/DAY, 1 SPRAY BNA QAM
     Route: 045
  2. LASIX [Concomitant]
     Dosage: 40 MG, 2X/DAY
     Route: 048
  3. VITAMIN E [Concomitant]
     Dosage: 400 IU, 1X/DAY
  4. NASONEX [Concomitant]
     Dosage: 2 SPRAY NASAL DAILY
     Route: 045
  5. CEFAZOLIN [Concomitant]
  6. MAGNESIUM OXIDE [Concomitant]
     Dosage: 400 MG, 1X/DAY
  7. FISH OIL [Concomitant]
     Dosage: 1000 MG, 3X/DAY
  8. COLACE [Concomitant]
     Dosage: 100 MG, 2X/DAY
     Route: 048
  9. HYDROCODONE BITARTRATE + ACETAMINOPHEN [Concomitant]
     Dosage: 5 MG- 500 MG TAB, 2 TAB PO PRN Q8H
     Route: 048
  10. VANCOMYCIN [Concomitant]
  11. PROPRANOLOL [Concomitant]
     Indication: HYPERTENSION
     Dosage: 160 MG CAP ER, 1X/DAY, QAM
     Route: 048
  12. VITAMIN D [Concomitant]
     Dosage: 400 IU, 1X/DAY
  13. CITRACAL [Concomitant]
     Dosage: UNK, 2X/DAY
  14. LISINOPRIL [Concomitant]
     Indication: HYPERTENSION
     Dosage: 10 MG, 1X/DAY
     Route: 048
  15. NYSTATIN [Concomitant]
  16. COZAAR [Concomitant]
     Indication: HYPERTENSION
     Dosage: 50 MG, 1X/DAY, DAILY
     Route: 048
  17. SENSIPAR [Concomitant]
     Dosage: 30 MG, 1X/DAY, 1 TAB PO QDAY
     Route: 048
  18. MIRALAX [Concomitant]
     Dosage: 1 PAC PO QDAY
     Route: 048
  19. SUTENT [Suspect]
     Indication: RENAL CELL CARCINOMA
     Dosage: 50 MG, 1X/DAY
     Route: 048
     Dates: start: 20120210, end: 20120304
  20. LASIX [Concomitant]
     Indication: HYPERTENSION
     Dosage: 20 MG, 1X/DAY, DAILY
     Route: 048
  21. PROTONIX [Concomitant]
     Dosage: 40 MG, 1X/DAY
     Route: 048

REACTIONS (18)
  - BALANCE DISORDER [None]
  - DIZZINESS [None]
  - PANCYTOPENIA [None]
  - OEDEMA [None]
  - BLISTER [None]
  - HYPOALBUMINAEMIA [None]
  - THINKING ABNORMAL [None]
  - RENAL CELL CARCINOMA [None]
  - RED BLOOD CELL COUNT DECREASED [None]
  - WHITE BLOOD CELL COUNT DECREASED [None]
  - HYPERCALCAEMIA [None]
  - RASH [None]
  - DEHYDRATION [None]
  - BLOOD CALCIUM INCREASED [None]
  - NAUSEA [None]
  - ASTHENIA [None]
  - RENAL FAILURE ACUTE [None]
  - DISEASE PROGRESSION [None]
